FAERS Safety Report 4592568-X (Version None)
Quarter: 2005Q1

REPORT INFORMATION
  Report Type: 
  Country: None (occurrence: None)
  Receive Date: 20050228
  Receipt Date: 20050215
  Transmission Date: 20050727
  Serious: Yes (Other)
  Sender: FDA-Public Use
  Company Number: 200511440GDDC

PATIENT
  Age: 81 Year
  Sex: Female

DRUGS (16)
  1. FELODIPINE [Suspect]
     Indication: MYOCARDIAL ISCHAEMIA
     Route: 048
     Dates: end: 20040728
  2. FRUSEMIDE [Suspect]
     Indication: ESSENTIAL HYPERTENSION
     Route: 048
     Dates: start: 20040727, end: 20040728
  3. ATENOLOL [Suspect]
     Route: 048
     Dates: end: 20040828
  4. ATORVASTATIN [Suspect]
     Indication: METABOLIC DISORDER
     Route: 048
     Dates: end: 20040728
  5. FGF TABS [Suspect]
     Dosage: DOSE: UNK
     Route: 048
     Dates: end: 20040728
  6. IRBESARTAN [Concomitant]
     Indication: HYPERTENSION
     Route: 048
  7. NICORANDIL [Concomitant]
     Dosage: DOSE: UNK
     Route: 048
  8. CLOPIDOGREL [Concomitant]
     Indication: MYOCARDIAL ISCHAEMIA
     Route: 048
  9. RAMIPRIL [Concomitant]
     Indication: MYOCARDIAL ISCHAEMIA
     Route: 048
     Dates: start: 20040615
  10. PANTOPRAZOLE [Concomitant]
     Dosage: DOSE: UNK
  11. QUININE [Concomitant]
     Route: 048
  12. ISOSORBIDE DINITRATE [Concomitant]
  13. NITROGLYCERIN [Concomitant]
     Dosage: DOSE: UNK
     Route: 048
  14. SIMVASTATIN [Concomitant]
     Dosage: DOSE: 10-20
     Dates: start: 19960101, end: 20040101
  15. MONOPRIL [Concomitant]
     Dosage: DOSE: UNK
     Dates: start: 19960101, end: 20040101
  16. ACETAMINOPHEN [Concomitant]
     Dosage: DOSE: UNK
     Route: 048
     Dates: start: 20040727

REACTIONS (12)
  - ALANINE AMINOTRANSFERASE INCREASED [None]
  - ASPARTATE AMINOTRANSFERASE INCREASED [None]
  - ASTHENIA [None]
  - BACK PAIN [None]
  - BLOOD ALKALINE PHOSPHATASE INCREASED [None]
  - BLOOD BILIRUBIN INCREASED [None]
  - BLOOD CREATINE PHOSPHOKINASE INCREASED [None]
  - GAMMA-GLUTAMYLTRANSFERASE INCREASED [None]
  - INTERNATIONAL NORMALISED RATIO INCREASED [None]
  - METABOLIC DISORDER [None]
  - MYOSITIS [None]
  - PAIN IN EXTREMITY [None]
